FAERS Safety Report 5033410-2 (Version None)
Quarter: 2006Q2

REPORT INFORMATION
  Report Type: 
  Country: None (occurrence: None)
  Receive Date: 20060518
  Receipt Date: 20051206
  Transmission Date: 20061013
  Serious: Yes (Other)
  Sender: FDA-Public Use
  Company Number: 2005137905

PATIENT
  Age: 50 Year
  Sex: Female

DRUGS (18)
  1. DEPO-PROVERA [Suspect]
     Indication: AFFECTIVE DISORDER
     Dosage: (LAST INJECTION, EVERY 3 MONTHS)
     Dates: start: 20050901, end: 20050901
  2. MULTIVITAMIN [Concomitant]
  3. VITAMIN B COMPLEX CAP [Concomitant]
  4. LEXAPRO [Concomitant]
  5. TRAZODONE HCL [Concomitant]
  6. TEVETEN [Concomitant]
  7. BUPROPION (BUPROPION) [Concomitant]
  8. PREVACID [Concomitant]
  9. LEVOTHYROXINE SODIUM [Concomitant]
  10. AVANDIA [Concomitant]
  11. ATENOLOL [Concomitant]
  12. CRESTOR [Concomitant]
  13. SEROQUEL [Concomitant]
  14. DYAZIDE [Concomitant]
  15. DETROL LA [Concomitant]
  16. CLINORIL [Concomitant]
  17. PREMARIN [Concomitant]
  18. TRIAMCINOLONE [Concomitant]

REACTIONS (2)
  - MOOD ALTERED [None]
  - PULMONARY EMBOLISM [None]
